FAERS Safety Report 4718702-6 (Version None)
Quarter: 2005Q3

REPORT INFORMATION
  Report Type: 
  Country: None (occurrence: None)
  Receive Date: 20050719
  Receipt Date: 20050714
  Transmission Date: 20060218
  Serious: Yes (Other)
  Sender: FDA-Public Use
  Company Number: S05-USA-01761-01

PATIENT
  Age: 54 Year
  Sex: Female

DRUGS (3)
  1. LEXAPRO [Suspect]
     Indication: GENERALISED ANXIETY DISORDER
     Dosage: 10 MG QD PO
     Route: 048
     Dates: start: 20050105
  2. CALCIUM GLUCONATE [Concomitant]
  3. ASCORBIC ACID [Concomitant]

REACTIONS (2)
  - HYPOACUSIS [None]
  - VIRAL INFECTION [None]
